FAERS Safety Report 12842893 (Version 4)
Quarter: 2016Q4

REPORT INFORMATION
  Report Type: Spontaneous
  Country: RO (occurrence: RO)
  Receive Date: 20161013
  Receipt Date: 20161129
  Transmission Date: 20170207
  Serious: Yes (Hospitalization)
  Sender: FDA-Public Use
  Company Number: RO-SUN PHARMACEUTICAL INDUSTRIES LTD-2016RR-125775

PATIENT
  Age: 10 Year
  Sex: Female
  Weight: 34 kg

DRUGS (1)
  1. METOCLOPRAMID 5MG/ML SOLUTIE INJECTABILA [Suspect]
     Active Substance: METOCLOPRAMIDE
     Indication: VOMITING
     Dosage: 0.25 MG/KG, UNK
     Route: 030
     Dates: start: 20160928, end: 20160928

REACTIONS (3)
  - Rash macular [Unknown]
  - Pruritus [Unknown]
  - Lip oedema [Recovered/Resolved]

NARRATIVE: CASE EVENT DATE: 20160928
